FAERS Safety Report 21119112 (Version 1)
Quarter: 2022Q3

REPORT INFORMATION
  Report Type: Spontaneous
  Country: US (occurrence: None)
  Receive Date: 20220722
  Receipt Date: 20220722
  Transmission Date: 20221026
  Serious: Yes (Life-Threatening)
  Sender: FDA-Public Use
  Company Number: 2022A259927

PATIENT
  Age: 67 Year
  Sex: Male

DRUGS (2)
  1. FARXIGA [Suspect]
     Active Substance: DAPAGLIFLOZIN PROPANEDIOL
     Route: 048
  2. ROSUVASTATIN [Suspect]
     Active Substance: ROSUVASTATIN
     Route: 048

REACTIONS (1)
  - Glomerular filtration rate decreased [Unknown]
